FAERS Safety Report 9982909 (Version 1)
Quarter: 2014Q1

REPORT INFORMATION
  Report Type: Report from Study
  Country: US (occurrence: US)
  Receive Date: 20140307
  Receipt Date: 20140307
  Transmission Date: 20141002
  Serious: No
  Sender: FDA-Public Use
  Company Number: US-ABBVIE-13P-163-1181208-00

PATIENT
  Age: 29 Year
  Sex: Female
  Weight: 72.64 kg

DRUGS (4)
  1. HUMIRA [Suspect]
     Indication: CROHN^S DISEASE
     Dosage: TWO 40 MG PENS ON DAY ONE
     Route: 058
     Dates: start: 20131119, end: 20131119
  2. HUMIRA [Suspect]
     Dosage: TWO 40 MG PENS ON DAY TWO
     Route: 058
     Dates: start: 20131120, end: 20131120
  3. HUMIRA [Suspect]
     Dosage: TWO 40 MG PENS ON DAY 15
     Route: 058
     Dates: start: 201312, end: 201312
  4. HUMIRA [Suspect]
     Route: 058

REACTIONS (1)
  - Epistaxis [Unknown]
